FAERS Safety Report 7740186-4 (Version None)
Quarter: 2011Q3

REPORT INFORMATION
  Report Type: 
  Country: None (occurrence: None)
  Receive Date: 20110909
  Receipt Date: 20110830
  Transmission Date: 20111222
  Serious: Yes (Other)
  Sender: FDA-Public Use
  Company Number: US-JNJFOC-20110808816

PATIENT
  Sex: Female
  Weight: 58.97 kg

DRUGS (8)
  1. ULTRAM [Suspect]
     Indication: SPINAL LAMINECTOMY
     Route: 048
     Dates: start: 20110301, end: 20110301
  2. METOPROLOL TARTRATE [Concomitant]
     Indication: PRODUCT USED FOR UNKNOWN INDICATION
     Dosage: TWICE A DAY
     Route: 048
  3. LOVASTATIN [Concomitant]
     Indication: HYPERLIPIDAEMIA
     Dosage: ONCE A DAY
     Route: 048
  4. NEURONTIN [Concomitant]
     Indication: SPINAL LAMINECTOMY
     Dosage: 3 TIMES IN A DAY
     Route: 048
  5. ULTRAM SR [Suspect]
     Indication: SPINAL LAMINECTOMY
     Dosage: 300MG/ONCE A DAY, DRUG STOPPED ON 20-MAR-2011
     Route: 048
     Dates: start: 20110314, end: 20110320
  6. PLAVIX [Concomitant]
     Indication: STENT PLACEMENT
     Dosage: 20MG/EVERY OTHER DAY
     Route: 048
  7. ULTRAM [Suspect]
     Dosage: 2X50MG
     Route: 048
     Dates: start: 20110301, end: 20110301
  8. ASPIRIN [Concomitant]
     Indication: STENT PLACEMENT
     Dosage: 81 MG EVERY OTHER DAY
     Route: 048

REACTIONS (6)
  - ROAD TRAFFIC ACCIDENT [None]
  - DRUG INEFFECTIVE [None]
  - HALLUCINATION [None]
  - MEMORY IMPAIRMENT [None]
  - ADVERSE DRUG REACTION [None]
  - SOMNOLENCE [None]
